FAERS Safety Report 22173627 (Version 3)
Quarter: 2023Q2

REPORT INFORMATION
  Report Type: Spontaneous
  Country: ES (occurrence: ES)
  Receive Date: 20230404
  Receipt Date: 20230509
  Transmission Date: 20230722
  Serious: Yes (Death, Hospitalization, Other)
  Sender: FDA-Public Use
  Company Number: ES-ALXN-A202304071

PATIENT
  Age: 67 Year
  Sex: Female
  Weight: 48 kg

DRUGS (2)
  1. SOLIRIS [Suspect]
     Active Substance: ECULIZUMAB
     Dosage: 1200 MG, Q2W
     Route: 042
     Dates: start: 20221020
  2. SOLIRIS [Suspect]
     Active Substance: ECULIZUMAB
     Indication: Atypical haemolytic uraemic syndrome
     Dosage: 900 MG, QW
     Route: 042
     Dates: start: 20220921, end: 20221013

REACTIONS (8)
  - Upper gastrointestinal haemorrhage [Fatal]
  - Haemodynamic instability [Fatal]
  - Klebsiella urinary tract infection [Recovered/Resolved]
  - Chronic kidney disease [Unknown]
  - Pelvic fracture [Not Recovered/Not Resolved]
  - Ascites [Recovered/Resolved]
  - Portal hypertension [Unknown]
  - Diabetic nephropathy [Unknown]

NARRATIVE: CASE EVENT DATE: 20230131
